FAERS Safety Report 9777991 (Version 2)
Quarter: 2013Q4

REPORT INFORMATION
  Report Type: Report from Study
  Country: IT (occurrence: IT)
  Receive Date: 20131223
  Receipt Date: 20131223
  Transmission Date: 20140711
  Serious: Yes (Hospitalization, Other)
  Sender: FDA-Public Use
  Company Number: IT-ROCHE-1319751

PATIENT
  Age: 59 Year
  Sex: Female

DRUGS (7)
  1. BEVACIZUMAB [Suspect]
     Indication: OVARIAN EPITHELIAL CANCER
     Route: 042
     Dates: start: 20130923
  2. BEVACIZUMAB [Suspect]
     Route: 042
     Dates: start: 20131014
  3. BEVACIZUMAB [Suspect]
     Route: 042
     Dates: start: 20131106
  4. CARBOPLATIN [Suspect]
     Indication: OVARIAN EPITHELIAL CANCER
     Dosage: DOSE TEMPORARILY SUSPENDED
     Route: 065
     Dates: start: 20130923, end: 20131014
  5. PACLITAXEL [Suspect]
     Indication: OVARIAN EPITHELIAL CANCER
     Dosage: DOSE TEMPORARILY SUSPENDED
     Route: 065
     Dates: start: 20130923, end: 20131014
  6. TELMISARTAN [Concomitant]
     Route: 065
     Dates: start: 20100610
  7. IDROCLOROTIAZIDE [Concomitant]
     Route: 065
     Dates: start: 20100610

REACTIONS (1)
  - Arrhythmia [Recovered/Resolved]
